FAERS Safety Report 7096092-4 (Version None)
Quarter: 2010Q4

REPORT INFORMATION
  Report Type: 
  Country: None (occurrence: None)
  Receive Date: 20101111
  Receipt Date: 20090520
  Transmission Date: 20110411
  Serious: Yes (Other)
  Sender: FDA-Public Use
  Company Number: IE-ROCHE-608949

PATIENT
  Sex: Male
  Weight: 85 kg

DRUGS (10)
  1. MIRCERA [Suspect]
     Route: 058
     Dates: start: 20081011
  2. MIRCERA [Suspect]
     Route: 058
     Dates: start: 20081001, end: 20090501
  3. ARANESP [Concomitant]
     Route: 058
     Dates: start: 20080801, end: 20081001
  4. ARANESP [Concomitant]
     Dosage: START DATE REPORTED AS ESTIMATED MAY 2009
     Route: 058
     Dates: start: 20090501
  5. LIPITOR [Concomitant]
     Dosage: DOSAGE REGIMEN: DAILY
     Route: 048
     Dates: start: 20070101
  6. FURSEMIDE [Concomitant]
     Indication: FLUID RETENTION
     Dosage: DOSAGE REGIMEN: DAILY
     Route: 048
     Dates: start: 20070101
  7. TRITACE [Concomitant]
     Indication: HYPERTENSION
     Route: 048
     Dates: start: 20070101
  8. DIOVAN [Concomitant]
     Indication: HYPERTENSION
     Route: 048
     Dates: start: 20070101
  9. PREDNISOLONE [Concomitant]
     Indication: RENAL TRANSPLANT
     Route: 048
     Dates: start: 20070101
  10. PRILOSEC [Concomitant]
     Indication: PROPHYLAXIS
     Route: 048
     Dates: start: 20070101

REACTIONS (1)
  - DRUG INEFFECTIVE [None]
